FAERS Safety Report 7585403-9 (Version None)
Quarter: 2011Q3

REPORT INFORMATION
  Report Type: 
  Country: None (occurrence: None)
  Receive Date: 20110701
  Receipt Date: 20110620
  Transmission Date: 20111222
  Serious: Yes (Hospitalization, Other)
  Sender: FDA-Public Use
  Company Number: JP-BAYER-2010-002570

PATIENT
  Age: 60 Year
  Sex: Male

DRUGS (2)
  1. INTRON A [Concomitant]
     Dosage: 9 MIU, OW
     Route: 058
     Dates: start: 20100701, end: 20101118
  2. NEXAVAR [Suspect]
     Indication: RENAL CELL CARCINOMA
     Dosage: 400 MG, BID
     Route: 048
     Dates: start: 20101008, end: 20110322

REACTIONS (6)
  - GAMMA-GLUTAMYLTRANSFERASE INCREASED [None]
  - PLATELET COUNT DECREASED [None]
  - CHEILITIS [None]
  - ASPARTATE AMINOTRANSFERASE INCREASED [None]
  - ALANINE AMINOTRANSFERASE INCREASED [None]
  - HEPATIC FUNCTION ABNORMAL [None]
